FAERS Safety Report 14339712 (Version 2)
Quarter: 2018Q1

REPORT INFORMATION
  Report Type: Spontaneous
  Country: TR (occurrence: TR)
  Receive Date: 20171230
  Receipt Date: 20180102
  Transmission Date: 20180509
  Serious: No
  Sender: FDA-Public Use
  Company Number: PHHY2017TR195476

PATIENT
  Age: 51 Year
  Sex: Female

DRUGS (7)
  1. CLARITHROMYCIN. [Suspect]
     Active Substance: CLARITHROMYCIN
     Indication: YELLOW NAIL SYNDROME
     Dosage: 1000 MG, UNK
     Route: 065
     Dates: start: 201512
  2. METHYLPREDNISOLONE. [Suspect]
     Active Substance: METHYLPREDNISOLONE
     Indication: INTERSTITIAL LUNG DISEASE
  3. ALFA-TOCOFEROL (TOCOPHEROL) [Suspect]
     Active Substance: TOCOPHEROL
     Indication: INTERSTITIAL LUNG DISEASE
  4. ALFA-TOCOFEROL (TOCOPHEROL) [Suspect]
     Active Substance: TOCOPHEROL
     Indication: YELLOW NAIL SYNDROME
     Dosage: 100 IU, UNK
     Route: 065
     Dates: start: 201512
  5. ACITRETIN. [Suspect]
     Active Substance: ACITRETIN
     Indication: PSORIASIS
     Dosage: UNK
     Route: 048
  6. CLARITHROMYCIN. [Suspect]
     Active Substance: CLARITHROMYCIN
     Indication: INTERSTITIAL LUNG DISEASE
  7. METHYLPREDNISOLONE. [Suspect]
     Active Substance: METHYLPREDNISOLONE
     Indication: YELLOW NAIL SYNDROME
     Dosage: 48 MG, DAILY
     Route: 048
     Dates: start: 201512

REACTIONS (2)
  - Myopathy [Unknown]
  - Muscular weakness [Unknown]
